FAERS Safety Report 7045077-2 (Version None)
Quarter: 2010Q4

REPORT INFORMATION
  Report Type: 
  Country: None (occurrence: None)
  Receive Date: 20101014
  Receipt Date: 20101006
  Transmission Date: 20110411
  Serious: Yes (Hospitalization)
  Sender: FDA-Public Use
  Company Number: BR-JNJCH-2007335341

PATIENT
  Age: 17 Year
  Sex: Male

DRUGS (5)
  1. IBUPROFEN [Suspect]
     Indication: PRODUCT USED FOR UNKNOWN INDICATION
     Dosage: TEXT:20 DOSE (S)
     Route: 048
     Dates: start: 20071105, end: 20071105
  2. DIPHENHYDRAMINE [Suspect]
     Indication: PRODUCT USED FOR UNKNOWN INDICATION
     Dosage: TEXT:16 DOSE (S)
     Route: 048
     Dates: start: 20071105, end: 20071105
  3. ACETYLSALICYLIC ACID [Suspect]
     Indication: PRODUCT USED FOR UNKNOWN INDICATION
     Dosage: TEXT:30 DOSE (S)
     Route: 048
     Dates: start: 20071105, end: 20071105
  4. TYLENOL [Suspect]
     Indication: PRODUCT USED FOR UNKNOWN INDICATION
     Dosage: TEXT:30 DOSE (S)
     Route: 048
     Dates: start: 20071105, end: 20071105
  5. METAMIZOLE [Suspect]
     Indication: PRODUCT USED FOR UNKNOWN INDICATION
     Dosage: TEXT:20 DOSE (S)
     Route: 048
     Dates: start: 20071105, end: 20071105

REACTIONS (5)
  - DIZZINESS [None]
  - MULTIPLE DRUG OVERDOSE INTENTIONAL [None]
  - SOMNOLENCE [None]
  - SUICIDE ATTEMPT [None]
  - VOMITING [None]
